FAERS Safety Report 6385318-8 (Version None)
Quarter: 2009Q4

REPORT INFORMATION
  Report Type: 
  Country: None (occurrence: None)
  Receive Date: 20091002
  Receipt Date: 20080804
  Transmission Date: 20100525
  Serious: No
  Sender: FDA-Public Use
  Company Number: US-ASTRAZENECA-2008UW15847

PATIENT
  Age: 57 Year
  Sex: Female

DRUGS (3)
  1. ARIMIDEX [Suspect]
     Indication: BREAST CANCER FEMALE
     Dates: start: 20060801
  2. LIPITOR [Concomitant]
  3. SYNTHROID [Concomitant]

REACTIONS (3)
  - JOINT SPRAIN [None]
  - NECK PAIN [None]
  - TRIGGER FINGER [None]
